FAERS Safety Report 14018383 (Version 2)
Quarter: 2017Q4

REPORT INFORMATION
  Report Type: Report from Study
  Country: None (occurrence: CO)
  Receive Date: 20170928
  Receipt Date: 20171002
  Transmission Date: 20180321
  Serious: Yes (Death)
  Sender: FDA-Public Use
  Company Number: CO-ABBVIE-17S-036-2113965-00

PATIENT
  Age: 28 Year
  Sex: Female
  Weight: 55 kg

DRUGS (1)
  1. VIEKIRA PAK [Suspect]
     Active Substance: DASABUVIR\OMBITASVIR\PARITAPREVIR\RITONAVIR
     Indication: HEPATITIS C
     Route: 048
     Dates: start: 20170719, end: 20170921

REACTIONS (5)
  - Vomiting [Fatal]
  - Diabetic ketoacidosis [Fatal]
  - Encephalopathy [Fatal]
  - Central nervous system infection [Fatal]
  - Malaise [Fatal]

NARRATIVE: CASE EVENT DATE: 20170719
